FAERS Safety Report 7390694-3 (Version None)
Quarter: 2011Q2

REPORT INFORMATION
  Report Type: 
  Country: None (occurrence: None)
  Receive Date: 20110404
  Receipt Date: 20110324
  Transmission Date: 20111010
  Serious: No
  Sender: FDA-Public Use
  Company Number: US-BIOGENIDEC-2011BI009519

PATIENT
  Sex: Female

DRUGS (1)
  1. TYSABRI [Suspect]
     Indication: MULTIPLE SCLEROSIS
     Route: 042
     Dates: start: 20080707

REACTIONS (6)
  - STRESS [None]
  - COUGH [None]
  - BRONCHITIS [None]
  - FATIGUE [None]
  - BALANCE DISORDER [None]
  - INFLUENZA [None]
